FAERS Safety Report 7632961-1 (Version None)
Quarter: 2011Q3

REPORT INFORMATION
  Report Type: 
  Country: None (occurrence: None)
  Receive Date: 20110725
  Receipt Date: 20110714
  Transmission Date: 20111222
  Serious: Yes (Other)
  Sender: FDA-Public Use
  Company Number: PHEH2010US02437

PATIENT
  Sex: Female

DRUGS (19)
  1. HERCEPTIN [Suspect]
     Dosage: 162 MG, QW
     Dates: end: 20070611
  2. ZOFRAN [Concomitant]
  3. VICODIN [Concomitant]
  4. ZOMETA [Suspect]
     Indication: BREAST CANCER
  5. TAXOTERE [Suspect]
     Dosage: 58 MG, QW
  6. FEMARA [Concomitant]
     Dosage: 2.5 MG, QD
     Route: 048
  7. ARANESP [Concomitant]
  8. DECADRON [Concomitant]
  9. ADRIAMYCIN PFS [Concomitant]
  10. CARBOPLATIN [Concomitant]
  11. TORSEMIDE [Concomitant]
  12. COREG [Concomitant]
  13. KLOR-CON [Concomitant]
  14. PROCRIT [Concomitant]
  15. FASLODEX [Concomitant]
  16. CLEOCIN HYDROCHLORIDE [Concomitant]
  17. ZOMETA [Suspect]
     Indication: HYPERCALCAEMIA OF MALIGNANCY
     Dosage: 4 MG, QMO
     Route: 042
     Dates: start: 20031201, end: 20070201
  18. LISINOPRIL [Concomitant]
  19. ZOMETA [Suspect]
     Indication: METASTASES TO BONE

REACTIONS (29)
  - OSTEONECROSIS OF JAW [None]
  - RASH [None]
  - WEIGHT DECREASED [None]
  - JAW DISORDER [None]
  - INJURY [None]
  - EJECTION FRACTION DECREASED [None]
  - CARDIAC DISORDER [None]
  - PATHOLOGICAL FRACTURE [None]
  - NAIL DISORDER [None]
  - PRURITUS [None]
  - PAIN [None]
  - BONE LOSS [None]
  - ECCHYMOSIS [None]
  - ERYTHEMA [None]
  - FLUID RETENTION [None]
  - OSTEOMYELITIS [None]
  - PRIMARY SEQUESTRUM [None]
  - CELLULITIS [None]
  - SENSATION OF HEAVINESS [None]
  - ONYCHOCLASIS [None]
  - TOOTH LOSS [None]
  - IMPAIRED HEALING [None]
  - EXPOSED BONE IN JAW [None]
  - DENTAL CARIES [None]
  - PLEURAL EFFUSION [None]
  - NEUROPATHY PERIPHERAL [None]
  - FISTULA [None]
  - PARAESTHESIA [None]
  - EMPHYSEMA [None]
